FAERS Safety Report 5110770-5 (Version None)
Quarter: 2006Q3

REPORT INFORMATION
  Report Type: 
  Country: None (occurrence: None)
  Receive Date: 20060919
  Receipt Date: 20060908
  Transmission Date: 20061208
  Serious: Yes (Other)
  Sender: FDA-Public Use
  Company Number: 001-0981-M0007917

PATIENT
  Age: 52 Year
  Sex: Male
  Weight: 81.1939 kg

DRUGS (3)
  1. LIPITOR [Suspect]
     Indication: DRUG USE FOR UNKNOWN INDICATION
     Dosage: 20 MG (20 MG, 1 IN 1 D), ORAL
     Route: 048
     Dates: start: 20000101, end: 20000401
  2. AVAPRO [Concomitant]
  3. ATENOLOL [Concomitant]

REACTIONS (10)
  - BLOOD CREATINE PHOSPHOKINASE INCREASED [None]
  - BLOOD PRESSURE INCREASED [None]
  - BLOOD UREA INCREASED [None]
  - DIPLOPIA [None]
  - DYSPNOEA [None]
  - HEART RATE INCREASED [None]
  - HEPATIC ENZYME INCREASED [None]
  - MUSCLE SPASMS [None]
  - PALLOR [None]
  - TETANY [None]
